FAERS Safety Report 25577311 (Version 1)
Quarter: 2025Q3

REPORT INFORMATION
  Report Type: Spontaneous
  Country: US (occurrence: US)
  Receive Date: 20250718
  Receipt Date: 20250718
  Transmission Date: 20251020
  Serious: No
  Sender: CSL BEHRING
  Company Number: US-BEH-2025212616

PATIENT
  Age: 22 Year
  Sex: Male

DRUGS (2)
  1. IDELVION [Suspect]
     Active Substance: COAGULATION FACTOR IX RECOMBINANT HUMAN
     Indication: Factor IX deficiency
     Dosage: 3000 IU, QW
     Route: 042
     Dates: start: 20200224
  2. IDELVION [Suspect]
     Active Substance: COAGULATION FACTOR IX RECOMBINANT HUMAN
     Indication: Factor IX deficiency
     Dosage: 3000 IU, QW
     Route: 042
     Dates: start: 20200224

REACTIONS (3)
  - Injury [Unknown]
  - Ligament sprain [Unknown]
  - Joint swelling [Unknown]

NARRATIVE: CASE EVENT DATE: 20250704
